FAERS Safety Report 11247010 (Version 1)
Quarter: 2015Q3

REPORT INFORMATION
  Report Type: Spontaneous
  Country: US (occurrence: US)
  Receive Date: 20150708
  Receipt Date: 20150708
  Transmission Date: 20151125
  Serious: No
  Sender: FDA-Public Use
  Company Number: US-TEVA-539131USA

PATIENT

DRUGS (1)
  1. CHLORDIAZEPOXIDE [Suspect]
     Active Substance: CHLORDIAZEPOXIDE
     Route: 048

REACTIONS (1)
  - Drug effect increased [Unknown]

NARRATIVE: CASE EVENT DATE: 201501
